FAERS Safety Report 11445021 (Version 1)
Quarter: 2015Q3

REPORT INFORMATION
  Report Type: Spontaneous
  Country: US (occurrence: None)
  Receive Date: 20150901
  Receipt Date: 20150901
  Transmission Date: 20151125
  Serious: Yes (Death)
  Sender: FDA-Public Use
  Company Number: None

PATIENT
  Age: 59 Year
  Sex: Female

DRUGS (22)
  1. SPIRONOLACTONE (ALDACTONE) [Concomitant]
  2. LASIX [Concomitant]
     Active Substance: FUROSEMIDE
  3. ENOXAPARIN SODIUM. [Concomitant]
     Active Substance: ENOXAPARIN SODIUM
  4. AZTREONAM (AZACTAM) [Concomitant]
  5. ATIVAN [Suspect]
     Active Substance: LORAZEPAM
     Indication: PRODUCT USED FOR UNKNOWN INDICATION
     Dates: start: 20150213, end: 20150220
  6. RIFAZIMIN (XIFAXAN) [Concomitant]
  7. ZOFRAN [Concomitant]
     Active Substance: ONDANSETRON HYDROCHLORIDE
  8. HALDOL [Suspect]
     Active Substance: HALOPERIDOL
     Indication: PRODUCT USED FOR UNKNOWN INDICATION
     Dates: start: 20150213, end: 20150220
  9. LORAZEPAM (ATIVAN) [Concomitant]
  10. LACTULOSE. [Concomitant]
     Active Substance: LACTULOSE
  11. DILAUDID [Suspect]
     Active Substance: HYDROMORPHONE HYDROCHLORIDE
     Indication: PRODUCT USED FOR UNKNOWN INDICATION
     Dates: start: 20150213, end: 20150220
  12. TRAMADOL (ULTRAM) [Concomitant]
  13. PANTOPRAZOLE (PROTONIX) [Concomitant]
  14. LEVOFLOXACIN (LEVAQUIN IN D5W) [Concomitant]
  15. AZTREONAM (AZACTAM) [Concomitant]
  16. SODIUM CHLORIDE 0.9% [Concomitant]
     Active Substance: SODIUM CHLORIDE
  17. IPRATROPLUM -ALBUTEROL (DUONEB) [Concomitant]
  18. HALOPERIDOL LACTATE (HALDOL) [Concomitant]
  19. HYDRROMOPHONE (DILAUDID) [Concomitant]
  20. CLINDAMYCIN PHOSPHATE (CLEOCIN) [Concomitant]
  21. ZOFRAN [Concomitant]
     Active Substance: ONDANSETRON HYDROCHLORIDE
  22. POTASSIUM CHLORIDE. [Concomitant]
     Active Substance: POTASSIUM CHLORIDE

REACTIONS (3)
  - Respiratory failure [None]
  - Pneumonia [None]
  - Product use issue [None]

NARRATIVE: CASE EVENT DATE: 20150213
